FAERS Safety Report 25771162 (Version 1)
Quarter: 2025Q3

REPORT INFORMATION
  Report Type: Spontaneous
  Country: US (occurrence: US)
  Receive Date: 20250908
  Receipt Date: 20250908
  Transmission Date: 20251021
  Serious: No
  Sender: DOMPE FARMACEUTICI
  Company Number: US-FARMAPROD-202504-1075

PATIENT
  Age: 65 Year
  Sex: Female

DRUGS (4)
  1. OXERVATE [Suspect]
     Active Substance: CENEGERMIN-BKBJ
     Indication: Neurotrophic keratopathy
     Route: 047
     Dates: start: 20250327
  2. MELOXICAM [Concomitant]
     Active Substance: MELOXICAM
  3. TRAMADOL HCL [Concomitant]
     Active Substance: TRAMADOL HYDROCHLORIDE
  4. ONE A DAY WOMEN^S [ASCORBIC ACID;BETACAROTENE;BIOTIN;CALCIUM CARBONATE [Concomitant]

REACTIONS (5)
  - Eye discharge [Unknown]
  - Eye pain [Unknown]
  - Ocular discomfort [Unknown]
  - Dry eye [Unknown]
  - Photophobia [Unknown]

NARRATIVE: CASE EVENT DATE: 20250407
